FAERS Safety Report 25481740 (Version 1)
Quarter: 2025Q2

REPORT INFORMATION
  Report Type: Spontaneous
  Country: FR (occurrence: FR)
  Receive Date: 20250626
  Receipt Date: 20250626
  Transmission Date: 20250717
  Serious: Yes (Other)
  Sender: AUROBINDO
  Company Number: FR-AFSSAPS-BX2025000899

PATIENT
  Age: 20 Year
  Sex: Male
  Weight: 68 kg

DRUGS (2)
  1. FLUOXETINE HYDROCHLORIDE [Suspect]
     Active Substance: FLUOXETINE HYDROCHLORIDE
     Indication: Product used for unknown indication
     Dosage: 60 MILLIGRAM, ONCE A DAY (3 CPR 20 MG PAR JOUR LE MATIN)
     Route: 048
     Dates: start: 20250314
  2. CYAMEMAZINE [Suspect]
     Active Substance: CYAMEMAZINE
     Indication: Product used for unknown indication
     Dosage: 112.5 MILLIGRAM, ONCE A DAY (1,5-0-3 DE 25 MG + 1 CPR DE 25 MG EN SI BESOIN)
     Route: 048
     Dates: start: 20250310

REACTIONS (2)
  - Retrograde ejaculation [Not Recovered/Not Resolved]
  - Dysuria [Not Recovered/Not Resolved]

NARRATIVE: CASE EVENT DATE: 20250507
